FAERS Safety Report 7920142-3 (Version None)
Quarter: 2011Q4

REPORT INFORMATION
  Report Type: 
  Country: None (occurrence: None)
  Receive Date: 20111117
  Receipt Date: 20111108
  Transmission Date: 20120403
  Serious: Yes (Other)
  Sender: FDA-Public Use
  Company Number: CA-JNJFOC-20111009853

PATIENT
  Sex: Female
  Weight: 52 kg

DRUGS (4)
  1. REMICADE [Suspect]
     Indication: CROHN'S DISEASE
     Route: 042
     Dates: start: 20090701, end: 20111001
  2. REMICADE [Suspect]
     Indication: RHEUMATOID ARTHRITIS
     Route: 042
     Dates: start: 20090701, end: 20111001
  3. PREDNISONE TAB [Concomitant]
  4. METHOTREXATE [Concomitant]
     Route: 058

REACTIONS (3)
  - CHEST PAIN [None]
  - LUPUS-LIKE SYNDROME [None]
  - ARTHRALGIA [None]
